FAERS Safety Report 16731695 (Version 2)
Quarter: 2019Q3

REPORT INFORMATION
  Report Type: Spontaneous
  Country: US (occurrence: US)
  Receive Date: 20190822
  Receipt Date: 20190923
  Transmission Date: 20191005
  Serious: No
  Sender: FDA-Public Use
  Company Number: US-SA-2019SA223664

PATIENT
  Age: 36 Year
  Sex: Female

DRUGS (31)
  1. EMGALITY [Concomitant]
     Active Substance: GALCANEZUMAB-GNLM
  2. RANITIDINE. [Concomitant]
     Active Substance: RANITIDINE
  3. BREO ELLIPTA [Concomitant]
     Active Substance: FLUTICASONE FUROATE\VILANTEROL TRIFENATATE
  4. ADVAIR HFA [Concomitant]
     Active Substance: FLUTICASONE PROPIONATE\SALMETEROL XINAFOATE
  5. CLINDAMYCIN/BENZOYL PEROXIDE [Concomitant]
     Active Substance: BENZOYL PEROXIDE\CLINDAMYCIN PHOSPHATE
  6. LYRICA [Concomitant]
     Active Substance: PREGABALIN
  7. ATIVAN [Concomitant]
     Active Substance: LORAZEPAM
  8. LAMICTAL [Concomitant]
     Active Substance: LAMOTRIGINE
  9. METFORMIN [Concomitant]
     Active Substance: METFORMIN HYDROCHLORIDE
  10. PATANOL [Concomitant]
     Active Substance: OLOPATADINE HYDROCHLORIDE
  11. PROVIGIL [Concomitant]
     Active Substance: MODAFINIL
  12. SUCRALFATE. [Concomitant]
     Active Substance: SUCRALFATE
  13. ALBUTEROL SULFATE. [Concomitant]
     Active Substance: ALBUTEROL SULFATE
  14. PREGABALIN. [Concomitant]
     Active Substance: PREGABALIN
  15. VISTARIL [HYDROXYZINE HYDROCHLORIDE] [Concomitant]
  16. VIIBRYD [Concomitant]
     Active Substance: VILAZODONE HYDROCHLORIDE
  17. QUETIAPINE FUMARATE. [Concomitant]
     Active Substance: QUETIAPINE FUMARATE
  18. VRAYLAR [Concomitant]
     Active Substance: CARIPRAZINE
  19. BUSPIRONE [Concomitant]
     Active Substance: BUSPIRONE HYDROCHLORIDE
  20. SPIRIVA [Concomitant]
     Active Substance: TIOTROPIUM BROMIDE MONOHYDRATE
  21. DUPIXENT [Suspect]
     Active Substance: DUPILUMAB
     Indication: ASTHMA
     Dosage: 300 MG, QOW
     Route: 058
     Dates: start: 20190701
  22. DYMISTA [Concomitant]
     Active Substance: AZELASTINE HYDROCHLORIDE\FLUTICASONE PROPIONATE
  23. VITAMIN D3 [Concomitant]
     Active Substance: CHOLECALCIFEROL
  24. CORLANOR [Concomitant]
     Active Substance: IVABRADINE HYDROCHLORIDE
  25. BACLOFEN. [Concomitant]
     Active Substance: BACLOFEN
  26. GABAPENTIN. [Concomitant]
     Active Substance: GABAPENTIN
  27. PROAIR HFA [Concomitant]
     Active Substance: ALBUTEROL SULFATE
  28. TRAZODONE [Concomitant]
     Active Substance: TRAZODONE HYDROCHLORIDE
  29. CARAFATE [Concomitant]
     Active Substance: SUCRALFATE
  30. SULFACETAMIDE SODIUM. [Concomitant]
     Active Substance: SULFACETAMIDE SODIUM
  31. ESOMEPRAZOLE MAGNESIUM. [Concomitant]
     Active Substance: ESOMEPRAZOLE MAGNESIUM

REACTIONS (5)
  - Pyrexia [Unknown]
  - Viral infection [Unknown]
  - Injection site rash [Unknown]
  - Injection site erythema [Unknown]
  - Cough [Unknown]

NARRATIVE: CASE EVENT DATE: 2019
